FAERS Safety Report 24853473 (Version 1)
Quarter: 2025Q1

REPORT INFORMATION
  Report Type: Spontaneous
  Country: AU (occurrence: AU)
  Receive Date: 20250117
  Receipt Date: 20250117
  Transmission Date: 20250408
  Serious: Yes (Hospitalization)
  Sender: ASTELLAS
  Company Number: AU-ASTELLAS-2025-AER-001821

PATIENT
  Age: 25 Year
  Sex: Female
  Weight: 42 kg

DRUGS (9)
  1. TACROLIMUS [Suspect]
     Active Substance: TACROLIMUS
     Indication: Haemophagocytic lymphohistiocytosis
     Dosage: (WITH THERAPEUTIC LEVELS)
     Route: 065
  2. TACROLIMUS [Suspect]
     Active Substance: TACROLIMUS
     Indication: Haemophagocytic lymphohistiocytosis
  3. KINERET [Suspect]
     Active Substance: ANAKINRA
     Indication: Haemophagocytic lymphohistiocytosis
     Route: 065
     Dates: start: 20241108
  4. KINERET [Suspect]
     Active Substance: ANAKINRA
     Indication: Haemophagocytic lymphohistiocytosis
  5. METHYLPREDNISOLONE [Suspect]
     Active Substance: METHYLPREDNISOLONE
     Indication: Haemophagocytic lymphohistiocytosis
     Route: 065
     Dates: start: 20241108
  6. METHYLPREDNISOLONE [Suspect]
     Active Substance: METHYLPREDNISOLONE
     Indication: Haemophagocytic lymphohistiocytosis
     Dosage: 1G X3DAY
     Route: 065
     Dates: start: 20241125
  7. PREDNISOLONE [Suspect]
     Active Substance: PREDNISOLONE
     Indication: Still^s disease
     Route: 065
  8. PREDNISOLONE [Suspect]
     Active Substance: PREDNISOLONE
     Indication: Haemophagocytic lymphohistiocytosis
     Route: 065
  9. PREDNISOLONE [Suspect]
     Active Substance: PREDNISOLONE
     Indication: Haemophagocytic lymphohistiocytosis

REACTIONS (5)
  - Haemophagocytic lymphohistiocytosis [Not Recovered/Not Resolved]
  - Condition aggravated [Not Recovered/Not Resolved]
  - Serum ferritin increased [Unknown]
  - Exposure during pregnancy [Not Recovered/Not Resolved]
  - Off label use [Unknown]

NARRATIVE: CASE EVENT DATE: 20241108
